FAERS Safety Report 5719412-9 (Version None)
Quarter: 2008Q2

REPORT INFORMATION
  Report Type: 
  Country: None (occurrence: None)
  Receive Date: 20080421
  Receipt Date: 20070726
  Transmission Date: 20081010
  Serious: Yes (Disabling)
  Sender: FDA-Public Use
  Company Number: WAES 0707USA04667

PATIENT
  Age: 6 Year
  Sex: Female
  Weight: 25.855 kg

DRUGS (1)
  1. SINGULAIR [Suspect]
     Indication: ASTHMA
     Dosage: 1/2 TABLET/DAILY/PO
     Route: 048
     Dates: start: 20060623, end: 20070718

REACTIONS (3)
  - CONVULSION [None]
  - OVERDOSE [None]
  - WRONG TECHNIQUE IN DRUG USAGE PROCESS [None]
